FAERS Safety Report 7681277-6 (Version None)
Quarter: 2011Q3

REPORT INFORMATION
  Report Type: 
  Country: None (occurrence: None)
  Receive Date: 20110812
  Receipt Date: 20110428
  Transmission Date: 20111222
  Serious: Yes (Death)
  Sender: FDA-Public Use
  Company Number: GB-BAXTER-2011BH026221

PATIENT
  Age: 42 Year
  Sex: Male

DRUGS (11)
  1. PREDNISOLONE [Concomitant]
     Indication: VIITH NERVE PARALYSIS
     Route: 065
  2. RITONAVIR [Concomitant]
     Indication: HIV INFECTION
     Route: 065
  3. VINCRISTINE [Suspect]
     Indication: BURKITT'S LYMPHOMA
     Route: 065
  4. METHOTREXATE [Suspect]
     Indication: BURKITT'S LYMPHOMA
     Route: 065
  5. IFOSFAMIDE [Suspect]
     Indication: BURKITT'S LYMPHOMA
     Route: 065
  6. DOXORUBICIN HCL [Suspect]
     Indication: BURKITT'S LYMPHOMA
     Route: 042
  7. LOPINAVIR [Concomitant]
     Indication: HIV INFECTION
     Route: 065
  8. ETOPOSIDE [Suspect]
     Indication: BURKITT'S LYMPHOMA
     Route: 065
  9. CYCLOPHOSPHAMIDE [Suspect]
     Indication: BURKITT'S LYMPHOMA
     Route: 065
  10. CYTARABINE [Suspect]
     Indication: BURKITT'S LYMPHOMA
     Route: 037
  11. ACYCLOVIR [Concomitant]
     Indication: VIITH NERVE PARALYSIS
     Route: 065

REACTIONS (1)
  - BURKITT'S LYMPHOMA [None]
